FAERS Safety Report 12391109 (Version 1)
Quarter: 2016Q2

REPORT INFORMATION
  Report Type: Spontaneous
  Country: US (occurrence: US)
  Receive Date: 20160520
  Receipt Date: 20160520
  Transmission Date: 20160815
  Serious: No
  Sender: FDA-Public Use
  Company Number: US-PFIZER INC-2016233042

PATIENT
  Sex: Female

DRUGS (3)
  1. TYVASO [Suspect]
     Active Substance: TREPROSTINIL
     Indication: PULMONARY ARTERIAL HYPERTENSION
     Dosage: 72 UG, 4X/DAY (0.6 MG/ML; 12 BREATHS, FOUR TIMES)
     Route: 055
     Dates: start: 20140410
  2. LYRICA [Suspect]
     Active Substance: PREGABALIN
     Dosage: UNK
     Dates: end: 201604
  3. GABAPENTIN. [Suspect]
     Active Substance: GABAPENTIN
     Dosage: UNK
     Dates: start: 201604

REACTIONS (2)
  - Depressed mood [Unknown]
  - Product use issue [Unknown]

NARRATIVE: CASE EVENT DATE: 201604
